FAERS Safety Report 7369703-3 (Version None)
Quarter: 2011Q1

REPORT INFORMATION
  Report Type: 
  Country: None (occurrence: None)
  Receive Date: 20110317
  Receipt Date: 20110317
  Transmission Date: 20110831
  Serious: Yes (Life-Threatening)
  Sender: FDA-Public Use
  Company Number: None

PATIENT
  Sex: Female
  Weight: 77.1115 kg

DRUGS (1)
  1. VIMPAT [Suspect]
     Indication: CONVULSION
     Dosage: 100MG IV X 24 HRS.
     Dates: start: 20110218, end: 20110220

REACTIONS (1)
  - LIVER FUNCTION TEST ABNORMAL [None]
